FAERS Safety Report 8065323-6 (Version None)
Quarter: 2012Q1

REPORT INFORMATION
  Report Type: 
  Country: None (occurrence: None)
  Receive Date: 20120124
  Receipt Date: 20120123
  Transmission Date: 20120608
  Serious: No
  Sender: FDA-Public Use
  Company Number: US-PFIZER INC-2012018488

PATIENT
  Sex: Male

DRUGS (1)
  1. NICOTROL [Suspect]
     Indication: SMOKING CESSATION THERAPY
     Dosage: UNK, 6X/DAY
     Dates: start: 20120120, end: 20120122

REACTIONS (1)
  - DRUG INEFFECTIVE [None]
